FAERS Safety Report 8063105-2 (Version None)
Quarter: 2012Q1

REPORT INFORMATION
  Report Type: 
  Country: None (occurrence: None)
  Receive Date: 20120123
  Receipt Date: 20120109
  Transmission Date: 20120608
  Serious: Yes (Other)
  Sender: FDA-Public Use
  Company Number: SI-ROCHE-GNE321395

PATIENT
  Sex: Female

DRUGS (4)
  1. RANIBIZUMAB [Suspect]
     Dosage: UNK
     Route: 050
     Dates: start: 20110207
  2. RANIBIZUMAB [Suspect]
     Indication: AGE-RELATED MACULAR DEGENERATION
     Route: 050
     Dates: start: 20100111
  3. RANIBIZUMAB [Suspect]
     Dosage: UNK
     Route: 050
     Dates: start: 20100210
  4. RANIBIZUMAB [Suspect]
     Dosage: UNK
     Route: 050
     Dates: start: 20110314

REACTIONS (2)
  - VISUAL ACUITY REDUCED [None]
  - MACULAR DEGENERATION [None]
